FAERS Safety Report 9353663 (Version 1)
Quarter: 2013Q2

REPORT INFORMATION
  Report Type: Spontaneous
  Country: FR (occurrence: FR)
  Receive Date: 20130618
  Receipt Date: 20130618
  Transmission Date: 20140414
  Serious: Yes (Hospitalization, Other)
  Sender: FDA-Public Use
  Company Number: FR-AMGEN-FRASP2011062949

PATIENT
  Age: 48 Year
  Sex: Female
  Weight: 103 kg

DRUGS (9)
  1. ENBREL [Suspect]
     Indication: RHEUMATOID ARTHRITIS
     Dosage: UNK
     Route: 058
     Dates: end: 201010
  2. ORENCIA [Suspect]
     Indication: RHEUMATOID ARTHRITIS
     Dosage: 1 G, UNK
     Route: 042
     Dates: start: 20101014
  3. ORENCIA [Suspect]
     Dosage: 1 G, UNK
     Route: 042
     Dates: start: 20101028
  4. ORENCIA [Suspect]
     Dosage: 750 MG, UNK
     Route: 042
     Dates: start: 20101112
  5. ORENCIA [Suspect]
     Dosage: 750 MG, UNK
     Route: 042
     Dates: start: 20101209
  6. ORENCIA [Suspect]
     Dosage: 750 MG, UNK
     Route: 042
     Dates: start: 20110110
  7. ORENCIA [Suspect]
     Dosage: 750 MG, UNK
     Route: 042
     Dates: start: 20110208
  8. ORENCIA [Suspect]
     Dosage: 750 MG, UNK
     Route: 042
     Dates: start: 20110324
  9. ORENCIA [Suspect]
     Dosage: 1 G, UNK
     Route: 042
     Dates: start: 20110516

REACTIONS (3)
  - IgA nephropathy [Unknown]
  - Vasculitis [Recovering/Resolving]
  - Henoch-Schonlein purpura [Unknown]
